FAERS Safety Report 7836926-6 (Version None)
Quarter: 2011Q4

REPORT INFORMATION
  Report Type: 
  Country: None (occurrence: None)
  Receive Date: 20111024
  Receipt Date: 20110309
  Transmission Date: 20120403
  Serious: No
  Sender: FDA-Public Use
  Company Number: US-ABBOTT-11P-163-0708297-00

PATIENT
  Sex: Female
  Weight: 103.97 kg

DRUGS (14)
  1. LUPRON DEPOT [Suspect]
     Indication: ENDOMETRIOSIS
     Route: 050
     Dates: start: 20110101
  2. ZOLOFT [Concomitant]
     Indication: DEPRESSION
     Dates: start: 20110101, end: 20110101
  3. RELPAX [Concomitant]
     Indication: HEADACHE
  4. VALTREX [Concomitant]
     Indication: HERPES VIRUS INFECTION
  5. EXCEDRIN (MIGRAINE) [Concomitant]
     Indication: HEADACHE
  6. AMLODIPINE BESYLATE AND BENAZEPRIL HCL [Concomitant]
     Indication: HYPERTENSION
  7. NORETHINDRONE [Concomitant]
     Indication: HORMONE THERAPY
     Dates: start: 20110101
  8. RELPAX [Concomitant]
     Indication: MIGRAINE
  9. ZOLOFT [Concomitant]
     Dates: start: 20110101
  10. FLEXERIL [Concomitant]
     Indication: HEADACHE
  11. GABAPENTIN [Concomitant]
     Indication: HEADACHE
  12. TOPAMAX [Concomitant]
     Indication: HEADACHE
  13. GABAPENTIN [Concomitant]
     Indication: BACK PAIN
  14. FLEXERIL [Concomitant]
     Indication: BACK PAIN

REACTIONS (6)
  - DEPRESSED MOOD [None]
  - FEELING ABNORMAL [None]
  - EUPHORIC MOOD [None]
  - SUICIDAL IDEATION [None]
  - FLAT AFFECT [None]
  - DEPRESSION [None]
